FAERS Safety Report 4304544-2 (Version None)
Quarter: 2004Q1

REPORT INFORMATION
  Report Type: 
  Country: None (occurrence: None)
  Receive Date: 20040224
  Receipt Date: 20040212
  Transmission Date: 20041129
  Serious: No
  Sender: FDA-Public Use
  Company Number: 04P-143-0250309-00

PATIENT
  Age: 54 Year
  Sex: Female

DRUGS (2)
  1. TARKA [Suspect]
     Indication: HYPERTENSION
  2. SIBUTRAMINE HYDROCHLORIDE [Concomitant]

REACTIONS (2)
  - RASH ERYTHEMATOUS [None]
  - SWELLING [None]
